FAERS Safety Report 8089793-2 (Version None)
Quarter: 2012Q1

REPORT INFORMATION
  Report Type: 
  Country: None (occurrence: None)
  Receive Date: 20120128
  Receipt Date: 20110713
  Transmission Date: 20120608
  Serious: No
  Sender: FDA-Public Use
  Company Number: US-ABBOTT-11P-163-0838715-00

PATIENT
  Age: 51 Year
  Sex: Male

DRUGS (4)
  1. WESTCORT [Concomitant]
     Indication: PSORIASIS
     Dosage: APPLIES TO AFFECTED AREAS
  2. HUMIRA [Suspect]
     Indication: PSORIASIS
     Dates: start: 20110525
  3. TACLONEX [Concomitant]
     Indication: PSORIASIS
     Dosage: APPLIES TO AFFECTED AREAS
  4. DIPROLENE [Concomitant]
     Indication: PSORIASIS
     Dosage: APPLIES TO AFFECTED AREAS

REACTIONS (2)
  - INJECTION SITE PAIN [None]
  - PAIN [None]
